FAERS Safety Report 6638664-4 (Version None)
Quarter: 2010Q1

REPORT INFORMATION
  Report Type: 
  Country: None (occurrence: None)
  Receive Date: 20100316
  Receipt Date: 20100316
  Transmission Date: 20100710
  Serious: Yes (Hospitalization)
  Sender: FDA-Public Use
  Company Number: None

PATIENT
  Sex: Male
  Weight: 91.6266 kg

DRUGS (8)
  1. CISPLATIN [Suspect]
     Indication: LUNG CANCER METASTATIC
     Dosage: 160 MG EVERY 21 DAYS IV
     Route: 042
     Dates: start: 20100208, end: 20100208
  2. AVASTIN [Suspect]
     Indication: LUNG CANCER METASTATIC
     Dosage: 1365 MG EVERY 21 DAYS IV
     Route: 042
     Dates: start: 20100208, end: 20100208
  3. PEMETREXED [Concomitant]
  4. ATENOLOL [Concomitant]
  5. IMODIUM [Concomitant]
  6. AMLODIPINE [Concomitant]
  7. QUINAPRIL [Concomitant]
  8. FOLIC ACID [Concomitant]

REACTIONS (3)
  - ANAEMIA [None]
  - RENAL FAILURE ACUTE [None]
  - RIB FRACTURE [None]
